FAERS Safety Report 9391471 (Version 1)
Quarter: 2013Q3

REPORT INFORMATION
  Report Type: Spontaneous
  Country: US (occurrence: US)
  Receive Date: 20130709
  Receipt Date: 20130709
  Transmission Date: 20140515
  Serious: Yes (Other)
  Sender: FDA-Public Use
  Company Number: US-GLAXOSMITHKLINE-A1031046A

PATIENT
  Age: 46 Year
  Sex: Female

DRUGS (11)
  1. NICODERM CQ CLEAR 14MG [Suspect]
     Indication: SMOKING CESSATION THERAPY
     Route: 062
     Dates: end: 20130704
  2. NICODERM CQ [Suspect]
     Indication: SMOKING CESSATION THERAPY
  3. ILOPERIDONE [Suspect]
  4. CLOZAPINE [Concomitant]
  5. DEPAKOTE [Concomitant]
  6. ZYPREXA [Concomitant]
  7. ATENOLOL [Concomitant]
  8. DOCUSATE SODIUM [Concomitant]
  9. CITRACAL [Concomitant]
  10. OMEGA 3 [Concomitant]
  11. ACIDOPHILUS [Concomitant]

REACTIONS (5)
  - Cardiac flutter [Recovered/Resolved]
  - Heart rate increased [Recovered/Resolved]
  - Palpitations [Recovered/Resolved]
  - Intentional drug misuse [Unknown]
  - Drug interaction [Recovered/Resolved]
